FAERS Safety Report 13425520 (Version 1)
Quarter: 2017Q2

REPORT INFORMATION
  Report Type: Report from Study
  Country: US (occurrence: US)
  Receive Date: 20170411
  Receipt Date: 20170411
  Transmission Date: 20170830
  Serious: No
  Sender: FDA-Public Use
  Company Number: US-009507513-1703USA011063

PATIENT
  Age: 70 Year
  Sex: Male
  Weight: 147.85 kg

DRUGS (4)
  1. PEMBROLIZUMAB. [Suspect]
     Active Substance: PEMBROLIZUMAB
     Dosage: UNK, ONCE A WEEK, EVERY 3 WEEKS
     Route: 042
     Dates: start: 20170327, end: 20170327
  2. LASIX [Concomitant]
     Active Substance: FUROSEMIDE
     Dosage: UNK
  3. DIURETIC (HYDROCHLOROTHIAZIDE) [Concomitant]
     Dosage: UNK
  4. PEMBROLIZUMAB. [Suspect]
     Active Substance: PEMBROLIZUMAB
     Indication: LUNG NEOPLASM MALIGNANT
     Dosage: UNK, ONCE A WEEK, EVERY 3 WEEKS
     Route: 042
     Dates: start: 20170306, end: 20170306

REACTIONS (8)
  - Weight increased [Unknown]
  - Weight decreased [Unknown]
  - Dyspnoea [Unknown]
  - Dysgeusia [Unknown]
  - Nausea [Unknown]
  - Decreased appetite [Unknown]
  - Ageusia [Unknown]
  - Fluid retention [Unknown]

NARRATIVE: CASE EVENT DATE: 201703
